FAERS Safety Report 8091798-2 (Version None)
Quarter: 2012Q1

REPORT INFORMATION
  Report Type: 
  Country: None (occurrence: None)
  Receive Date: 20120129
  Receipt Date: 20111112
  Transmission Date: 20120608
  Serious: No
  Sender: FDA-Public Use
  Company Number: US-ABBOTT-11P-163-0874009-00

PATIENT
  Age: 46 Year
  Sex: Female

DRUGS (7)
  1. HYDROCODONE BITARTRATE [Concomitant]
     Indication: PAIN
  2. BACLOFEN [Concomitant]
     Indication: MUSCLE RELAXANT THERAPY
  3. CALCIUM [Concomitant]
     Indication: PRODUCT USED FOR UNKNOWN INDICATION
  4. FOLIC ACID [Concomitant]
     Indication: PRODUCT USED FOR UNKNOWN INDICATION
  5. METHOTREXATE [Concomitant]
     Indication: PRODUCT USED FOR UNKNOWN INDICATION
  6. ESOMEPRAZOLE SODIUM [Concomitant]
     Indication: GASTROOESOPHAGEAL REFLUX DISEASE
  7. HUMIRA [Suspect]
     Indication: RHEUMATOID ARTHRITIS
     Dates: start: 20101227

REACTIONS (3)
  - INJECTION SITE SWELLING [None]
  - BURNING SENSATION [None]
  - INJECTION SITE ERYTHEMA [None]
